FAERS Safety Report 9007852 (Version 1)
Quarter: 2013Q1

REPORT INFORMATION
  Report Type: Spontaneous
  Country: US (occurrence: US)
  Receive Date: 20130110
  Receipt Date: 20130110
  Transmission Date: 20140127
  Serious: Yes (Hospitalization, Other)
  Sender: FDA-Public Use
  Company Number: US-B.I. PHARMACEUTICALS,INC./RIDGEFIELD-2013-BI-00072BP

PATIENT
  Age: 72 Year
  Sex: Male

DRUGS (3)
  1. PRADAXA [Suspect]
     Indication: CEREBROVASCULAR ACCIDENT PROPHYLAXIS
     Dosage: 300 MG
     Route: 048
     Dates: start: 2011, end: 20120216
  2. PRADAXA [Suspect]
     Indication: ATRIAL FIBRILLATION
     Dosage: 150 MG
     Route: 048
     Dates: start: 20120217, end: 201210
  3. PRADAXA [Suspect]
     Dosage: 75 MG
     Route: 048
     Dates: start: 201210

REACTIONS (4)
  - Myocardial infarction [Recovered/Resolved]
  - Pleural effusion [Unknown]
  - Vascular injury [Recovered/Resolved]
  - Haematoma [Recovered/Resolved]
